FAERS Safety Report 5921592-7 (Version None)
Quarter: 2008Q3

REPORT INFORMATION
  Report Type: 
  Country: None (occurrence: None)
  Receive Date: 20080909
  Receipt Date: 20070824
  Transmission Date: 20090109
  Serious: Yes (Hospitalization)
  Sender: FDA-Public Use
  Company Number: 163-20785-07060843

PATIENT
  Age: 59 Year
  Sex: Male

DRUGS (15)
  1. THALOMID [Suspect]
     Indication: AMYOTROPHIC LATERAL SCLEROSIS
     Dosage: 400 MG, 1 IN 1 D
     Dates: start: 20070124, end: 20070521
  2. GARLIQUE (GARLIC) [Concomitant]
  3. FLAXSEED OIL (LINSEED OIL) [Concomitant]
  4. ASPIRIN [Concomitant]
  5. SUDAFED 12 HOUR [Concomitant]
  6. COENZYME Q10 [Concomitant]
  7. COLACE (DOCUSATE SODIUM) [Concomitant]
  8. SENOKOT [Concomitant]
  9. ALBUTEROL SULFATE [Concomitant]
  10. RILUTEK [Concomitant]
  11. AVODART [Concomitant]
  12. FLOMAX [Concomitant]
  13. PREVACID [Concomitant]
  14. ENSURE PLUS (ENSURE PLUS) [Concomitant]
  15. MORPHINE [Concomitant]

REACTIONS (7)
  - AMYOTROPHIC LATERAL SCLEROSIS [None]
  - DISEASE PROGRESSION [None]
  - DYSARTHRIA [None]
  - DYSPHAGIA [None]
  - GAIT DISTURBANCE [None]
  - MUSCULAR WEAKNESS [None]
  - RESPIRATORY FAILURE [None]
